FAERS Safety Report 6923002-X (Version None)
Quarter: 2010Q3

REPORT INFORMATION
  Report Type: 
  Country: None (occurrence: None)
  Receive Date: 20100811
  Receipt Date: 20100805
  Transmission Date: 20110219
  Serious: Yes (Death)
  Sender: FDA-Public Use
  Company Number: 2007-160271-NL

PATIENT
  Age: 31 Year
  Sex: Female
  Weight: 60 kg

DRUGS (5)
  1. NUVARING [Suspect]
     Indication: CONTRACEPTION
     Dosage: 1 DF
     Dates: start: 20050801, end: 20060224
  2. LEVOXYL [Concomitant]
  3. ALLEGRA [Concomitant]
  4. ZOLOFT [Concomitant]
  5. LUNESTA [Concomitant]

REACTIONS (10)
  - BLOOD PRESSURE DIASTOLIC DECREASED [None]
  - BRAIN DEATH [None]
  - BRAIN HERNIATION [None]
  - CAROTID ARTERY THROMBOSIS [None]
  - CEREBRAL ARTERY THROMBOSIS [None]
  - CEREBRAL INFARCTION [None]
  - CONFUSIONAL STATE [None]
  - GRAND MAL CONVULSION [None]
  - MENTAL IMPAIRMENT [None]
  - UNRESPONSIVE TO STIMULI [None]
